FAERS Safety Report 20343190 (Version 2)
Quarter: 2022Q1

REPORT INFORMATION
  Report Type: Spontaneous
  Country: US (occurrence: US)
  Receive Date: 20220117
  Receipt Date: 20220119
  Transmission Date: 20220424
  Serious: No
  Sender: FDA-Public Use
  Company Number: US-AMGEN-USASP2022007536

PATIENT
  Age: 23 Year
  Sex: Male

DRUGS (2)
  1. OTEZLA [Suspect]
     Active Substance: APREMILAST
     Indication: Psoriasis
     Dosage: 30 MILLIGRAM, BID
     Route: 048
     Dates: start: 20211220
  2. OTEZLA [Suspect]
     Active Substance: APREMILAST
     Indication: Eczema

REACTIONS (2)
  - Product dose omission issue [Not Recovered/Not Resolved]
  - Diarrhoea [Not Recovered/Not Resolved]
